FAERS Safety Report 13631918 (Version 1)
Quarter: 2017Q2

REPORT INFORMATION
  Report Type: Spontaneous
  Country: US (occurrence: US)
  Receive Date: 20170531
  Receipt Date: 20170531
  Transmission Date: 20170830
  Serious: No
  Sender: FDA-Public Use
  Company Number: US-ASTELLAS-1426340

PATIENT
  Age: 82 Year
  Sex: Female
  Weight: 64.47 kg

DRUGS (8)
  1. DIOVAN [Concomitant]
     Active Substance: VALSARTAN
  2. ASCORBIC ACID. [Concomitant]
     Active Substance: ASCORBIC ACID
  3. TARCEVA [Suspect]
     Active Substance: ERLOTINIB HYDROCHLORIDE
     Indication: LUNG NEOPLASM MALIGNANT
     Dosage: FREQUENCY: QD
     Route: 048
     Dates: start: 20120601
  4. VALIUM [Concomitant]
     Active Substance: DIAZEPAM
     Route: 065
  5. PRILOSEC [Concomitant]
     Active Substance: OMEPRAZOLE MAGNESIUM
  6. XANAX [Concomitant]
     Active Substance: ALPRAZOLAM
  7. BIOTIN [Concomitant]
     Active Substance: BIOTIN
  8. VITAMIN B COMPLEX [Concomitant]
     Active Substance: CYANOCOBALAMIN\DEXPANTHENOL\NIACINAMIDE\PYRIDOXINE HYDROCHLORIDE\RIBOFLAVIN 5^-PHOSPHATE SODIUM\THIAMINE HYDROCHLORIDE\VITAMIN B COMPLEX

REACTIONS (6)
  - Neuropathy peripheral [Unknown]
  - Diarrhoea [Unknown]
  - Nausea [Unknown]
  - Localised infection [Recovered/Resolved]
  - Myalgia [Unknown]
  - Muscle spasms [Unknown]

NARRATIVE: CASE EVENT DATE: 20140619
